FAERS Safety Report 13715432 (Version 1)
Quarter: 2017Q3

REPORT INFORMATION
  Report Type: Spontaneous
  Country: US (occurrence: US)
  Receive Date: 20170704
  Receipt Date: 20170704
  Transmission Date: 20171127
  Serious: No
  Sender: FDA-Public Use
  Company Number: US-CELGENEUS-USA-20170601544

PATIENT
  Sex: Female

DRUGS (1)
  1. OTEZLA [Suspect]
     Active Substance: APREMILAST
     Indication: PSORIASIS
     Dosage: 60 MILLIGRAM
     Route: 048
     Dates: start: 2016

REACTIONS (6)
  - Alopecia [Unknown]
  - Dysgeusia [Unknown]
  - Trichorrhexis [Unknown]
  - Weight decreased [Unknown]
  - Decreased appetite [Unknown]
  - Food craving [Unknown]

NARRATIVE: CASE EVENT DATE: 2016
